FAERS Safety Report 5913380-2 (Version None)
Quarter: 2008Q4

REPORT INFORMATION
  Report Type: 
  Country: None (occurrence: None)
  Receive Date: 20081009
  Receipt Date: 20081001
  Transmission Date: 20090506
  Serious: Yes (Other)
  Sender: FDA-Public Use
  Company Number: PHHY2008BR23302

PATIENT
  Age: 71 Year
  Sex: Female

DRUGS (5)
  1. EXFORGE [Suspect]
     Dosage: 80/5 MG
  2. LORAX                                   /BRA/ [Concomitant]
  3. PURAN T4 [Concomitant]
  4. CLOPIDOGREL [Concomitant]
  5. MATRIX [Concomitant]

REACTIONS (6)
  - BLOOD PRESSURE INCREASED [None]
  - ERYTHEMA [None]
  - MALAISE [None]
  - OROPHARYNGEAL PAIN [None]
  - PAIN IN EXTREMITY [None]
  - SWELLING [None]
